FAERS Safety Report 7209848-1 (Version None)
Quarter: 2011Q1

REPORT INFORMATION
  Report Type: 
  Country: None (occurrence: None)
  Receive Date: 20110104
  Receipt Date: 20101227
  Transmission Date: 20110831
  Serious: No
  Sender: FDA-Public Use
  Company Number: US-ROXANE LABORATORIES, INC.-2010-RO-01733RO

PATIENT
  Sex: Male

DRUGS (6)
  1. DUREZOL [Concomitant]
     Route: 031
  2. SUDAFED 12 HOUR [Concomitant]
  3. BLINK TEARS [Concomitant]
     Indication: DRY EYE
     Route: 031
  4. MULTI-VITAMIN [Concomitant]
  5. PILOCARPINE [Suspect]
     Indication: DRY EYE
     Dosage: 15 MG
     Dates: start: 20100101
  6. LACTAID [Concomitant]
     Indication: LACTOSE INTOLERANCE

REACTIONS (4)
  - FATIGUE [None]
  - ABNORMAL SENSATION IN EYE [None]
  - PRURITUS [None]
  - RASH [None]
